FAERS Safety Report 5584707-9 (Version None)
Quarter: 2008Q1

REPORT INFORMATION
  Report Type: 
  Country: None (occurrence: None)
  Receive Date: 20080108
  Receipt Date: 20071228
  Transmission Date: 20080703
  Serious: Yes (Other)
  Sender: FDA-Public Use
  Company Number: US-PFIZER INC-2008000354

PATIENT
  Age: 60 Year
  Sex: Male

DRUGS (2)
  1. CALAN [Suspect]
     Indication: HYPERTENSION
     Dosage: DAILY DOSE:280MG
  2. HYDROCHLOROTHIAZIDE [Concomitant]

REACTIONS (8)
  - ANXIETY [None]
  - BLOOD PRESSURE INADEQUATELY CONTROLLED [None]
  - DISABILITY [None]
  - DIZZINESS [None]
  - DYSPNOEA [None]
  - HEADACHE [None]
  - TINNITUS [None]
  - WEIGHT INCREASED [None]
